FAERS Safety Report 18496830 (Version 1)
Quarter: 2020Q4

REPORT INFORMATION
  Report Type: Spontaneous
  Country: US (occurrence: US)
  Receive Date: 20201112
  Receipt Date: 20201112
  Transmission Date: 20210114
  Serious: No
  Sender: FDA-Public Use
  Company Number: None

PATIENT
  Sex: Female

DRUGS (1)
  1. DIMETHYL FUMARTE DR 240MG MYLAN [Suspect]
     Active Substance: DIMETHYL FUMARATE
     Indication: MULTIPLE SCLEROSIS
     Route: 048

REACTIONS (6)
  - Muscle twitching [None]
  - Pruritus [None]
  - Pruritus genital [None]
  - Product substitution issue [None]
  - Skin burning sensation [None]
  - Eye pruritus [None]
